FAERS Safety Report 13428790 (Version 10)
Quarter: 2017Q3

REPORT INFORMATION
  Report Type: Spontaneous
  Country: KR (occurrence: KR)
  Receive Date: 20170411
  Receipt Date: 20170728
  Transmission Date: 20171127
  Serious: Yes (Other)
  Sender: FDA-Public Use
  Company Number: KR-009507513-1702KOR009737

PATIENT
  Age: 68 Year
  Sex: Male
  Weight: 63.8 kg

DRUGS (40)
  1. ALOXI [Concomitant]
     Active Substance: PALONOSETRON HYDROCHLORIDE
     Indication: PROPHYLAXIS OF NAUSEA AND VOMITING
     Dosage: 0.25 MG, ONCE
     Route: 042
     Dates: start: 20170119, end: 20170119
  2. DUOWELL (ROSUVASTATIN CALCIUM (+) TELMISARTAN) [Concomitant]
     Indication: ATRIAL FIBRILLATION
     Dosage: 1 TABLET (40/5 MG), DAILY
     Route: 048
     Dates: start: 20160125
  3. SEPTRIN [Concomitant]
     Active Substance: SULFAMETHOXAZOLE\TRIMETHOPRIM
     Dosage: 1 TABLET, TWICE A DAY
     Route: 048
     Dates: start: 20170407, end: 20170413
  4. EMEND (FOSAPREPITANT DIMEGLUMINE) [Suspect]
     Active Substance: FOSAPREPITANT DIMEGLUMINE
     Dosage: 150 MG, ONCE
     Route: 042
     Dates: start: 20170407, end: 20170407
  5. EMEND (FOSAPREPITANT DIMEGLUMINE) [Suspect]
     Active Substance: FOSAPREPITANT DIMEGLUMINE
     Dosage: 150 MG, ONCE
     Route: 042
     Dates: start: 20170508, end: 20170508
  6. LASTET [Concomitant]
     Active Substance: ETOPOSIDE
     Dosage: STRENGTH: 100 MG/5 ML; 69 MG, DAILY, CYCLE 2 (VIAL)
     Route: 042
     Dates: start: 20170209, end: 20170212
  7. LASTET [Concomitant]
     Active Substance: ETOPOSIDE
     Dosage: STRENGTH: 100 MG /5 ML; 69.5 MG, DAILY, CYCLE 5 (AMP)
     Route: 042
     Dates: start: 20170508, end: 20170511
  8. METHYLPREDNISOLONE SODIUM SUCCINATE. [Concomitant]
     Active Substance: METHYLPREDNISOLONE SODIUM SUCCINATE
     Dosage: 500 MG, DAILY
     Route: 042
     Dates: start: 20170209, end: 20170213
  9. ALOXI [Concomitant]
     Active Substance: PALONOSETRON HYDROCHLORIDE
     Dosage: 0.25 MG, ONCE
     Route: 042
     Dates: start: 20170209, end: 20170209
  10. TOREM [Concomitant]
     Active Substance: TORSEMIDE
     Indication: HYPERTENSION
     Dosage: 2.5 MG, DAILY
     Route: 048
     Dates: start: 20131018
  11. SEPTRIN [Concomitant]
     Active Substance: SULFAMETHOXAZOLE\TRIMETHOPRIM
     Dosage: 2 TABLET, DALIY
     Route: 048
     Dates: start: 20170309, end: 20170315
  12. LASTET [Concomitant]
     Active Substance: ETOPOSIDE
     Dosage: STRENGTH: 100 MG /5 ML; 69 MG, DAILY, CYCLE 3 (VIAL)
     Route: 042
     Dates: start: 20170309, end: 20170312
  13. CRAVIT [Concomitant]
     Active Substance: LEVOFLOXACIN
     Dosage: 500 MG, DAILY
     Route: 048
     Dates: start: 20170209, end: 20170218
  14. LASTET [Concomitant]
     Active Substance: ETOPOSIDE
     Indication: NODAL MARGINAL ZONE B-CELL LYMPHOMA RECURRENT
     Dosage: STRENGTH: 100 MG /5 ML; 69 MG, DAILY, CYCLE 1 (VIAL)
     Route: 042
     Dates: start: 20170119, end: 20170122
  15. METHYLPREDNISOLONE SODIUM SUCCINATE. [Concomitant]
     Active Substance: METHYLPREDNISOLONE SODIUM SUCCINATE
     Dosage: 500 MG, DAILY
     Route: 042
     Dates: start: 20170407, end: 20170411
  16. SEPTRIN [Concomitant]
     Active Substance: SULFAMETHOXAZOLE\TRIMETHOPRIM
     Indication: INFECTION PROPHYLAXIS
     Dosage: 1 TABLET, TWICE A DAY
     Route: 048
     Dates: start: 20170119, end: 20170125
  17. CRAVIT [Concomitant]
     Active Substance: LEVOFLOXACIN
     Dosage: 500 MG, DAILY
     Route: 048
     Dates: start: 20170508
  18. EMEND (FOSAPREPITANT DIMEGLUMINE) [Suspect]
     Active Substance: FOSAPREPITANT DIMEGLUMINE
     Indication: PROPHYLAXIS OF NAUSEA AND VOMITING
     Dosage: 150 MG, ONCE
     Route: 042
     Dates: start: 20170119, end: 20170119
  19. CISPLAN [Concomitant]
     Active Substance: CISPLATIN
     Dosage: STRENGTH: 50 MG /100 ML; 43 MG, DAILY, CYCLE 2
     Route: 042
     Dates: start: 20170209, end: 20170212
  20. CISPLAN [Concomitant]
     Active Substance: CISPLATIN
     Dosage: STRENGTH: 50 MG / 100 ML; 32.4 MG, DAILY, CYCLE 3
     Route: 042
     Dates: start: 20170309, end: 20170312
  21. CYTARABINE. [Concomitant]
     Active Substance: CYTARABINE
     Indication: NODAL MARGINAL ZONE B-CELL LYMPHOMA RECURRENT
     Dosage: STRENGTH: 2 G/40 ML; 3400 MG, ONCE, CYCLE 1
     Route: 042
     Dates: start: 20170123, end: 20170123
  22. CYTARABINE. [Concomitant]
     Active Substance: CYTARABINE
     Dosage: STRENGTH: 2 G /40 ML; 3666 MG, ONCE, CYCLE 3
     Route: 042
     Dates: start: 20170313, end: 20170313
  23. METHYLPREDNISOLONE SODIUM SUCCINATE. [Concomitant]
     Active Substance: METHYLPREDNISOLONE SODIUM SUCCINATE
     Dosage: 500 MG, DAILY
     Route: 042
     Dates: start: 20170508, end: 20170511
  24. DILATREND [Concomitant]
     Active Substance: CARVEDILOL
     Indication: HYPERTENSION
     Dosage: 16 MG, DAILY
     Route: 048
     Dates: start: 20120228, end: 20170306
  25. SEPTRIN [Concomitant]
     Active Substance: SULFAMETHOXAZOLE\TRIMETHOPRIM
     Dosage: 1 TABLET, TWICE A DAY
     Route: 048
     Dates: start: 20170209, end: 20170215
  26. CRAVIT [Concomitant]
     Active Substance: LEVOFLOXACIN
     Dosage: 500 MG, DAILY
     Route: 048
     Dates: start: 20170407, end: 20170416
  27. EMEND (FOSAPREPITANT DIMEGLUMINE) [Suspect]
     Active Substance: FOSAPREPITANT DIMEGLUMINE
     Dosage: 150 MG, ONCE
     Route: 042
     Dates: start: 20170209, end: 20170209
  28. LASTET [Concomitant]
     Active Substance: ETOPOSIDE
     Dosage: STRENGTH: 100 MG /5 ML; 67.5 MG, DAILY, CYCLE 4 (AMP)
     Route: 042
     Dates: start: 20170407, end: 20170410
  29. CYTARABINE. [Concomitant]
     Active Substance: CYTARABINE
     Dosage: STRENGTH: 2 G /40 ML; 3666 MG, ONCE, CYCLE 2
     Route: 042
     Dates: start: 20170213, end: 20170213
  30. XARELTO [Concomitant]
     Active Substance: RIVAROXABAN
     Indication: ATRIAL FIBRILLATION
     Dosage: 15 MG, DAILY
     Route: 048
     Dates: start: 20150720
  31. CRAVIT [Concomitant]
     Active Substance: LEVOFLOXACIN
     Dosage: 500 MG, DAILY
     Route: 048
     Dates: start: 20170309, end: 20170318
  32. CISPLAN [Concomitant]
     Active Substance: CISPLATIN
     Indication: NODAL MARGINAL ZONE B-CELL LYMPHOMA RECURRENT
     Dosage: STRENGTH: 50 MG / 100 ML; 43 MG, DAILY, CYCLE 1
     Route: 042
     Dates: start: 20170119, end: 20170122
  33. METHYLPREDNISOLONE SODIUM SUCCINATE. [Concomitant]
     Active Substance: METHYLPREDNISOLONE SODIUM SUCCINATE
     Indication: PROPHYLAXIS OF NAUSEA AND VOMITING
     Dosage: 500 MG, DAILY
     Route: 042
     Dates: start: 20170119, end: 20170123
  34. CRAVIT [Concomitant]
     Active Substance: LEVOFLOXACIN
     Indication: INFECTION PROPHYLAXIS
     Dosage: 500 MG, DAILY
     Route: 048
     Dates: start: 20170119, end: 20170128
  35. EMEND (FOSAPREPITANT DIMEGLUMINE) [Suspect]
     Active Substance: FOSAPREPITANT DIMEGLUMINE
     Dosage: 150 MG, ONCE
     Route: 042
     Dates: start: 20170309, end: 20170309
  36. ALOXI [Concomitant]
     Active Substance: PALONOSETRON HYDROCHLORIDE
     Dosage: 0.25 MG, ONCE
     Route: 042
     Dates: start: 20170309, end: 20170309
  37. ALOXI [Concomitant]
     Active Substance: PALONOSETRON HYDROCHLORIDE
     Dosage: 0.25 MG, ONCE
     Route: 042
     Dates: start: 20170407, end: 20170407
  38. ALOXI [Concomitant]
     Active Substance: PALONOSETRON HYDROCHLORIDE
     Dosage: 0.25 MG, ONCE
     Route: 042
     Dates: start: 20170508, end: 20170508
  39. SEPTRIN [Concomitant]
     Active Substance: SULFAMETHOXAZOLE\TRIMETHOPRIM
     Dosage: 1 TABLET, TWICE A DAY
     Route: 048
     Dates: start: 20170508
  40. METHYLPREDNISOLONE SODIUM SUCCINATE. [Concomitant]
     Active Substance: METHYLPREDNISOLONE SODIUM SUCCINATE
     Dosage: 500 MG, DAILY
     Route: 042
     Dates: start: 20170309, end: 20170313

REACTIONS (10)
  - Pyrexia [Recovered/Resolved]
  - Upper respiratory tract infection [Recovered/Resolved]
  - Neutrophil count decreased [Recovered/Resolved]
  - Platelet count decreased [Recovered/Resolved]
  - Decreased appetite [Recovering/Resolving]
  - Neutrophil count decreased [Recovered/Resolved]
  - Neutrophil count decreased [Recovered/Resolved]
  - Platelet count decreased [Recovered/Resolved]
  - Anaemia [Recovering/Resolving]
  - Platelet count decreased [Recovered/Resolved]

NARRATIVE: CASE EVENT DATE: 20170123
